FAERS Safety Report 7722569-1 (Version None)
Quarter: 2011Q3

REPORT INFORMATION
  Report Type: 
  Country: None (occurrence: None)
  Receive Date: 20110831
  Receipt Date: 20110822
  Transmission Date: 20111222
  Serious: Yes (Hospitalization, Other)
  Sender: FDA-Public Use
  Company Number: FR-GENZYME-POMP-1001729

PATIENT
  Sex: Male

DRUGS (1)
  1. MYOZYME [Suspect]
     Indication: GLYCOGEN STORAGE DISEASE TYPE II
     Dosage: UNK UNK, UNK
     Route: 042
     Dates: start: 20101218

REACTIONS (3)
  - DISEASE PROGRESSION [None]
  - LUNG INFECTION [None]
  - NO THERAPEUTIC RESPONSE [None]
